FAERS Safety Report 14607470 (Version 1)
Quarter: 2018Q1

REPORT INFORMATION
  Report Type: Spontaneous
  Country: US (occurrence: US)
  Receive Date: 20180307
  Receipt Date: 20180307
  Transmission Date: 20180509
  Serious: Yes (Hospitalization)
  Sender: FDA-Public Use
  Company Number: US-FRESENIUS MEDICAL CARE RENAL THERAPIES GROUP-FMC-1803-000450

PATIENT
  Age: 49 Year
  Sex: Male
  Weight: 103.5 kg

DRUGS (14)
  1. VELPHORO [Concomitant]
     Active Substance: FERRIC OXYHYDROXIDE
  2. CLONIDINE. [Concomitant]
     Active Substance: CLONIDINE
  3. ATORVASTATIN [Concomitant]
     Active Substance: ATORVASTATIN
  4. CALCIUM CARBONATE. [Concomitant]
     Active Substance: CALCIUM CARBONATE
  5. CLOPIDOGREL [Concomitant]
     Active Substance: CLOPIDOGREL BISULFATE
  6. MINOXIDIL. [Concomitant]
     Active Substance: MINOXIDIL
  7. DELFLEX WITH DEXTROSE 2.5% LOW MAGNESIUM LOW CALCIUM [Suspect]
     Active Substance: CALCIUM CHLORIDE\DEXTROSE\MAGNESIUM CHLORIDE\SODIUM CHLORIDE\SODIUM LACTATE
     Indication: END STAGE RENAL DISEASE
     Dosage: 7 EXCHANGES OF 2400ML
     Route: 033
     Dates: start: 20170612
  8. ASPRIN [Concomitant]
     Active Substance: ASPIRIN
  9. FUROSEMIDE. [Concomitant]
     Active Substance: FUROSEMIDE
  10. DELFLEX WITH DEXTROSE 1.5% LOW MAGNESIUM LOW CALCIUM [Suspect]
     Active Substance: CALCIUM CHLORIDE\DEXTROSE\MAGNESIUM CHLORIDE\SODIUM CHLORIDE\SODIUM LACTATE
     Indication: END STAGE RENAL DISEASE
     Dosage: 7 EXCHANGES OF 2400ML
     Route: 033
     Dates: start: 20170612
  11. AMLODIPINE [Concomitant]
     Active Substance: AMLODIPINE BESYLATE
  12. CARVEDILOL. [Concomitant]
     Active Substance: CARVEDILOL
  13. INSULIN [Concomitant]
     Active Substance: INSULIN NOS
  14. NITROGLYCERINE [Concomitant]
     Active Substance: NITROGLYCERIN

REACTIONS (1)
  - Myocardial infarction [Recovered/Resolved]

NARRATIVE: CASE EVENT DATE: 20171201
